FAERS Safety Report 10344559 (Version 1)
Quarter: 2014Q3

REPORT INFORMATION
  Report Type: Spontaneous
  Country: GB (occurrence: GB)
  Receive Date: 20140728
  Receipt Date: 20140728
  Transmission Date: 20150326
  Serious: Yes (Congenital Anomaly, Other)
  Sender: FDA-Public Use
  Company Number: GB-INDICUS PHARMA-000269

PATIENT

DRUGS (1)
  1. METFORMIN [Suspect]
     Active Substance: METFORMIN HYDROCHLORIDE
     Indication: GESTATIONAL DIABETES
     Dosage: 500MG TWICE DAILY FROM 21 WEEKS GESTATION AND INCREASED TO 1G TWICE DAILY FROM 23 WEEKS GESTATION
     Route: 064

REACTIONS (3)
  - Caesarean section [None]
  - Foetal macrosomia [Unknown]
  - Foetal exposure during pregnancy [Unknown]
